FAERS Safety Report 25860363 (Version 1)
Quarter: 2025Q3

REPORT INFORMATION
  Report Type: Spontaneous
  Country: US (occurrence: US)
  Receive Date: 20250929
  Receipt Date: 20250929
  Transmission Date: 20251021
  Serious: No
  Sender: ELI LILLY AND COMPANY
  Company Number: US-ELI_LILLY_AND_COMPANY-US202509028372

PATIENT
  Age: 55 Year
  Sex: Male

DRUGS (4)
  1. HUMALOG MIX50/50 [Suspect]
     Active Substance: INSULIN LISPRO
     Indication: Diabetes mellitus
     Route: 058
  2. HUMALOG MIX50/50 [Suspect]
     Active Substance: INSULIN LISPRO
     Indication: Diabetes mellitus
     Route: 058
  3. HUMALOG MIX50/50 [Suspect]
     Active Substance: INSULIN LISPRO
     Route: 058
  4. HUMALOG MIX50/50 [Suspect]
     Active Substance: INSULIN LISPRO
     Route: 058

REACTIONS (2)
  - Blood glucose increased [Unknown]
  - Product dose omission issue [Unknown]

NARRATIVE: CASE EVENT DATE: 20250923
